FAERS Safety Report 20493036 (Version 1)
Quarter: 2022Q1

REPORT INFORMATION
  Report Type: Spontaneous
  Country: US (occurrence: US)
  Receive Date: 20220220
  Receipt Date: 20220220
  Transmission Date: 20220423
  Serious: No
  Sender: FDA-Public Use
  Company Number: US-009507513-2202USA004432

PATIENT
  Sex: Male

DRUGS (1)
  1. JANUVIA [Suspect]
     Active Substance: SITAGLIPTIN PHOSPHATE
     Indication: Diabetes mellitus
     Dosage: 15 MG ONCE DAILY
     Route: 048
     Dates: start: 2021

REACTIONS (7)
  - Dizziness [Recovering/Resolving]
  - Malaise [Recovering/Resolving]
  - Product dose omission in error [Unknown]
  - Incorrect dose administered [Unknown]
  - Product use complaint [Unknown]
  - Product dose omission issue [Unknown]
  - Circumstance or information capable of leading to medication error [Unknown]

NARRATIVE: CASE EVENT DATE: 20210101
